FAERS Safety Report 24796977 (Version 5)
Quarter: 2025Q1

REPORT INFORMATION
  Report Type: Spontaneous
  Country: IT (occurrence: IT)
  Receive Date: 20250101
  Receipt Date: 20250213
  Transmission Date: 20250409
  Serious: Yes (Other)
  Sender: MYLAN
  Company Number: IT-DOCGEN-2407743

PATIENT
  Age: 42 Year
  Sex: Male
  Weight: 120 kg

DRUGS (5)
  1. CLOZAPINE [Suspect]
     Active Substance: CLOZAPINE
     Indication: Schizophrenia
     Dosage: 250 MILLIGRAM, QD
     Route: 065
  2. CLOZAPINE [Suspect]
     Active Substance: CLOZAPINE
     Dosage: 400 MILLIGRAM, QD
     Route: 065
  3. DELORAZEPAM [Suspect]
     Active Substance: DELORAZEPAM
     Indication: Schizophrenia
     Dosage: 10 GTT DROPS, Q3D (1/12 MILLILITRE)
     Route: 065
  4. HALOPERIDOL [Suspect]
     Active Substance: HALOPERIDOL
     Indication: Schizophrenia
     Dosage: 30 GTT DROPS, Q3D (1/12 MILLILITRE) EVERY 3 DAY(S) 9 MG/DAY)
     Route: 065
  5. VALPROIC ACID [Suspect]
     Active Substance: VALPROIC ACID
     Indication: Schizophrenia
     Dosage: 2000 MILLIGRAM, QD
     Route: 065

REACTIONS (4)
  - Neutropenia [Recovered/Resolved]
  - Drug withdrawal syndrome [Recovered/Resolved]
  - Therapy partial responder [Recovered/Resolved]
  - Off label use [Recovered/Resolved]
